FAERS Safety Report 7275639-9 (Version None)
Quarter: 2011Q1

REPORT INFORMATION
  Report Type: 
  Country: None (occurrence: None)
  Receive Date: 20110204
  Receipt Date: 20110125
  Transmission Date: 20110831
  Serious: Yes (Hospitalization)
  Sender: FDA-Public Use
  Company Number: US-JNJFOC-20110107990

PATIENT
  Sex: Male
  Weight: 12.7 kg

DRUGS (8)
  1. PROBIOTICS [Concomitant]
  2. INFLIXIMAB, RECOMBINANT [Suspect]
     Indication: CROHN'S DISEASE
     Route: 042
  3. HYDROCODONE BITARTRATE [Suspect]
     Indication: ILL-DEFINED DISORDER
  4. MORPHINE [Suspect]
     Indication: ILL-DEFINED DISORDER
  5. FEOSOL [Concomitant]
  6. ACETAMINOPHEN [Concomitant]
  7. INFLIXIMAB, RECOMBINANT [Suspect]
     Route: 042
  8. PREDNISONE [Concomitant]

REACTIONS (1)
  - POSTOPERATIVE ILEUS [None]
